FAERS Safety Report 5735108-1 (Version None)
Quarter: 2008Q2

REPORT INFORMATION
  Report Type: 
  Country: None (occurrence: None)
  Receive Date: 20080512
  Receipt Date: 20080507
  Transmission Date: 20081010
  Serious: Yes (Life-Threatening)
  Sender: FDA-Public Use
  Company Number: DK-ASTRAZENECA-2008SE02308

PATIENT

DRUGS (1)
  1. SEROQUEL PROLONG [Suspect]

REACTIONS (2)
  - ASPIRATION [None]
  - RESPIRATORY DEPRESSION [None]
